FAERS Safety Report 7518550-8 (Version None)
Quarter: 2011Q2

REPORT INFORMATION
  Report Type: 
  Country: None (occurrence: None)
  Receive Date: 20110601
  Receipt Date: 20110601
  Transmission Date: 20111010
  Serious: Yes (Other)
  Sender: FDA-Public Use
  Company Number: None

PATIENT
  Sex: Female
  Weight: 56.6996 kg

DRUGS (2)
  1. NEXIUM [Suspect]
     Indication: GASTROOESOPHAGEAL REFLUX DISEASE
     Dosage: ONE CAPSULE TWICE DAILY PO
     Route: 048
     Dates: start: 19970101, end: 20100101
  2. OMEPRAZOLE [Suspect]
     Indication: GASTROOESOPHAGEAL REFLUX DISEASE
     Dosage: ONE CAPSULE TWICE DAILY PO
     Route: 048
     Dates: start: 20100101, end: 20110101

REACTIONS (5)
  - FOOT FRACTURE [None]
  - RIB FRACTURE [None]
  - OSTEOPENIA [None]
  - WRIST FRACTURE [None]
  - HAND FRACTURE [None]
